FAERS Safety Report 25997518 (Version 1)
Quarter: 2025Q4

REPORT INFORMATION
  Report Type: Spontaneous
  Country: AU (occurrence: AU)
  Receive Date: 20251104
  Receipt Date: 20251104
  Transmission Date: 20260118
  Serious: Yes (Death)
  Sender: MERCK SHARP & DOHME LLC
  Company Number: AU-009507513-2344722

PATIENT
  Age: 75 Year
  Sex: Male

DRUGS (1)
  1. PEMBROLIZUMAB [Suspect]
     Active Substance: PEMBROLIZUMAB
     Indication: Malignant melanoma stage II
     Dosage: 4 CYCLES

REACTIONS (3)
  - Haemophagocytic lymphohistiocytosis [Fatal]
  - Systemic candida [Fatal]
  - Multiple organ dysfunction syndrome [Fatal]
